FAERS Safety Report 11820534 (Version 1)
Quarter: 2015Q4

REPORT INFORMATION
  Report Type: Spontaneous
  Country: US (occurrence: US)
  Receive Date: 20151210
  Receipt Date: 20151210
  Transmission Date: 20160305
  Serious: No
  Sender: FDA-Public Use
  Company Number: US-JNJFOC-20150312505

PATIENT
  Age: 70 Year
  Sex: Male
  Weight: 65 kg

DRUGS (9)
  1. ALLOPURINOL. [Concomitant]
     Active Substance: ALLOPURINOL
  2. METOPROLOL [Concomitant]
     Active Substance: METOPROLOL
  3. VALTREX [Concomitant]
     Active Substance: VALACYCLOVIR HYDROCHLORIDE
  4. FINASTERIDE. [Concomitant]
     Active Substance: FINASTERIDE
  5. IMBRUVICA [Suspect]
     Active Substance: IBRUTINIB
     Indication: CHRONIC LYMPHOCYTIC LEUKAEMIA
     Route: 048
     Dates: start: 20141130
  6. TAMSULOSIN [Concomitant]
     Active Substance: TAMSULOSIN
  7. PEPCID [Concomitant]
     Active Substance: FAMOTIDINE
  8. PREDNISONE. [Concomitant]
     Active Substance: PREDNISONE
  9. TRILIPIX [Concomitant]
     Active Substance: FENOFIBRIC ACID

REACTIONS (7)
  - Periorbital haematoma [Recovering/Resolving]
  - Conjunctivitis [Not Recovered/Not Resolved]
  - Fungal infection [Unknown]
  - Incorrect dose administered [Not Recovered/Not Resolved]
  - Haematoma [Recovering/Resolving]
  - Neutrophil count decreased [Recovered/Resolved]
  - Skin mass [Unknown]

NARRATIVE: CASE EVENT DATE: 20141130
